FAERS Safety Report 6739021-2 (Version None)
Quarter: 2010Q2

REPORT INFORMATION
  Report Type: 
  Country: None (occurrence: None)
  Receive Date: 20100524
  Receipt Date: 20100524
  Transmission Date: 20101027
  Serious: Yes (Disabling)
  Sender: FDA-Public Use
  Company Number: None

PATIENT
  Age: 10 Year
  Sex: Male
  Weight: 32.2054 kg

DRUGS (2)
  1. GUANFACINE [Suspect]
     Indication: ATTENTION DEFICIT/HYPERACTIVITY DISORDER
     Dosage: 2MG ONE PER DAY PO
     Route: 048
     Dates: start: 20100301, end: 20100601
  2. INTUNIV [Suspect]

REACTIONS (2)
  - OFF LABEL USE [None]
  - PRODUCT QUALITY ISSUE [None]
